FAERS Safety Report 6631694-8 (Version None)
Quarter: 2010Q1

REPORT INFORMATION
  Report Type: 
  Country: None (occurrence: None)
  Receive Date: 20100312
  Receipt Date: 20100305
  Transmission Date: 20100710
  Serious: Yes (Other)
  Sender: FDA-Public Use
  Company Number: PHHY2010BR14203

PATIENT
  Sex: Female
  Weight: 65 kg

DRUGS (3)
  1. EXELON [Suspect]
     Indication: DEMENTIA ALZHEIMER'S TYPE
     Dosage: 9MG/5CM2
     Route: 062
     Dates: start: 20091101, end: 20091201
  2. EXELON [Suspect]
     Dosage: 18MG/10CM2
     Route: 062
     Dates: start: 20091201
  3. EXELON [Suspect]
     Dosage: 18MG/10CM2 EVERY 2 DAYS
     Dates: end: 20100201

REACTIONS (15)
  - APPLICATION SITE ERYTHEMA [None]
  - APPLICATION SITE RASH [None]
  - BURNING SENSATION [None]
  - DYSPHONIA [None]
  - ERYTHEMA [None]
  - EXPIRED DRUG ADMINISTERED [None]
  - FALL [None]
  - HYPERSENSITIVITY [None]
  - ITCHING SCAR [None]
  - JOINT INJURY [None]
  - MOBILITY DECREASED [None]
  - NASOPHARYNGITIS [None]
  - OSTEOPOROSIS [None]
  - PRURITUS [None]
  - RASH [None]
